FAERS Safety Report 8218875-7 (Version None)
Quarter: 2012Q1

REPORT INFORMATION
  Report Type: 
  Country: None (occurrence: None)
  Receive Date: 20120319
  Receipt Date: 20120315
  Transmission Date: 20120608
  Serious: Yes (Death)
  Sender: FDA-Public Use
  Company Number: CN-ASTELLAS-2012JP002357

PATIENT
  Sex: Male

DRUGS (5)
  1. DAUNORUBICIN HCL [Concomitant]
     Indication: ACUTE MYELOID LEUKAEMIA
     Dosage: 60 MG, UNK
     Route: 065
     Dates: start: 20120220, end: 20120226
  2. MICAFUNGIN INJECTION [Suspect]
     Indication: INFECTION PROPHYLAXIS
     Dosage: 50 MG, UID/QD
     Route: 041
     Dates: start: 20120220, end: 20120308
  3. CYTARABINE [Concomitant]
     Indication: ACUTE MYELOID LEUKAEMIA
     Dosage: 75 MG, BID
     Route: 065
     Dates: start: 20120220, end: 20120226
  4. ANTIBIOTICS [Concomitant]
     Indication: INFECTION
     Dosage: UNK
     Route: 065
     Dates: start: 20120228
  5. ANTITUBERCULAR AGENTS [Concomitant]
     Indication: INFECTION
     Dosage: UNK
     Route: 065
     Dates: start: 20120228

REACTIONS (1)
  - CEREBRAL INFARCTION [None]
